FAERS Safety Report 10280705 (Version 4)
Quarter: 2014Q1

REPORT INFORMATION
  Report Type: Spontaneous
  Country: US (occurrence: None)
  Receive Date: 20120703
  Receipt Date: 20131226
  Transmission Date: 20141002
  Serious: Yes (Other)
  Sender: FDA-Public Use
  Company Number: PHEH2012US004098

PATIENT
  Age: 47 Year
  Sex: Male
  Weight: 84.4 kg

DRUGS (9)
  1. GILENYA (FTY) CAPSULE, 0.5MG [Suspect]
     Indication: MULTIPLE SCLEROSIS
     Route: 048
     Dates: start: 201105
  2. ANDROGEL [Concomitant]
  3. NSAID^S [Concomitant]
  4. ACETAMINOPHEN (PARACETAMOL) [Concomitant]
  5. STEROIDS NOS [Concomitant]
  6. CLARITIN (LORATADINE) [Concomitant]
  7. VITAMIN B12 (VITAMIN B NOS) [Concomitant]
  8. TESTOSTERON (TESTOSTERONE PROPIONATE) [Concomitant]
  9. PLANKTON [Concomitant]

REACTIONS (5)
  - Hepatic enzyme increased [None]
  - Aspartate aminotransferase increased [None]
  - Alanine aminotransferase increased [None]
  - Depression [None]
  - Inappropriate schedule of drug administration [None]
